FAERS Safety Report 10423766 (Version 2)
Quarter: 2015Q1

REPORT INFORMATION
  Report Type: Spontaneous
  Country: US (occurrence: None)
  Receive Date: 20140722
  Receipt Date: 20150120
  Transmission Date: 20150720
  Serious: Yes (Other)
  Sender: FDA-Public Use
  Company Number: AEGR000485

PATIENT
  Age: 63 Year
  Sex: Female
  Weight: 55.8 kg

DRUGS (6)
  1. LIPITOR (ATORVASTATIN CALCIUIM) [Concomitant]
  2. CYTOMEL (LIOTHYRONINE SODIUM) [Concomitant]
  3. JUXTAPID [Suspect]
     Active Substance: LOMITAPIDE MESYLATE
     Indication: TYPE IIA HYPERLIPIDAEMIA
     Dosage: ONCE EVERY 3 DAYS
     Route: 048
     Dates: start: 201403
  4. LEVOTHYROXINE (LEVOTHYROXINE) [Concomitant]
     Active Substance: LEVOTHYROXINE
  5. ASPIRIN (ACETYLSALICYLIC ACID) [Concomitant]
     Active Substance: ASPIRIN
  6. OMEGA 3 FISH OIL (FISH OIL) [Concomitant]
     Active Substance: OMEGA-3 FATTY ACIDS

REACTIONS (8)
  - Malaise [None]
  - Intentional product misuse [None]
  - Liver function test abnormal [None]
  - Aspartate aminotransferase increased [None]
  - Vomiting [None]
  - Inappropriate schedule of drug administration [None]
  - Alanine aminotransferase increased [None]
  - Diarrhoea [None]
